FAERS Safety Report 8282307-3 (Version None)
Quarter: 2012Q2

REPORT INFORMATION
  Report Type: 
  Country: None (occurrence: None)
  Receive Date: 20120413
  Receipt Date: 20120413
  Transmission Date: 20120825
  Serious: No
  Sender: FDA-Public Use
  Company Number: None

PATIENT
  Age: 69 Year
  Sex: Female
  Weight: 81.646 kg

DRUGS (1)
  1. EVISTA [Suspect]
     Indication: BONE DISORDER
     Dosage: 60.0 MG
     Route: 048
     Dates: start: 20110601, end: 20120412

REACTIONS (4)
  - PAIN IN EXTREMITY [None]
  - DYSSTASIA [None]
  - GAIT DISTURBANCE [None]
  - INSOMNIA [None]
